FAERS Safety Report 5954661-6 (Version None)
Quarter: 2008Q4

REPORT INFORMATION
  Report Type: 
  Country: None (occurrence: None)
  Receive Date: 20081113
  Receipt Date: 20081104
  Transmission Date: 20090506
  Serious: No
  Sender: FDA-Public Use
  Company Number: 2008-186353-NL

PATIENT
  Age: 56 Year
  Sex: Male

DRUGS (3)
  1. NANDROLONE DECANOATE [Suspect]
     Indication: ERECTILE DYSFUNCTION
     Dosage: DF
  2. NANDROLONE DECANOATE [Suspect]
     Indication: ERECTION INCREASED
     Dosage: DF
  3. NANDROLONE DECANOATE [Suspect]
     Indication: PENIS DISORDER
     Dosage: DF

REACTIONS (4)
  - DRUG ADMINISTERED AT INAPPROPRIATE SITE [None]
  - INJECTION SITE REACTION [None]
  - LIPOGRANULOMA [None]
  - PENIS DISORDER [None]
